FAERS Safety Report 5898048-3 (Version None)
Quarter: 2008Q3

REPORT INFORMATION
  Report Type: 
  Country: None (occurrence: None)
  Receive Date: 20080905
  Receipt Date: 20071212
  Transmission Date: 20090109
  Serious: Yes (Disabling)
  Sender: FDA-Public Use
  Company Number: WAES 0712USA03734

PATIENT
  Age: 52 Year
  Sex: Female

DRUGS (1)
  1. TAB MAXALT [Suspect]
     Indication: MIGRAINE
     Dosage: 10 MG/PRN/PO
     Route: 048
     Dates: start: 20070401

REACTIONS (2)
  - NAUSEA [None]
  - VOMITING [None]
